FAERS Safety Report 17179219 (Version 2)
Quarter: 2020Q1

REPORT INFORMATION
  Report Type: Spontaneous
  Country: US (occurrence: US)
  Receive Date: 20191219
  Receipt Date: 20200123
  Transmission Date: 20200409
  Serious: No
  Sender: FDA-Public Use
  Company Number: US-JNJFOC-20191224745

PATIENT
  Sex: Female
  Weight: 83.54 kg

DRUGS (1)
  1. WOMENS ROGAINE UNSCENTED [Suspect]
     Active Substance: MINOXIDIL
     Indication: ALOPECIA
     Dosage: WHAT IT TOLD ON LABEL
     Route: 061

REACTIONS (3)
  - Hair disorder [Recovering/Resolving]
  - Application site irritation [Recovering/Resolving]
  - Application site pain [Recovering/Resolving]
